FAERS Safety Report 4554502-8 (Version None)
Quarter: 2005Q1

REPORT INFORMATION
  Report Type: 
  Country: None (occurrence: None)
  Receive Date: 20050114
  Receipt Date: 20031117
  Transmission Date: 20050727
  Serious: Yes (Life-Threatening, Hospitalization)
  Sender: FDA-Public Use
  Company Number: GXKR2003US00549

PATIENT
  Age: 15 Year
  Sex: Female

DRUGS (1)
  1. PROPRANOLOL [Suspect]
     Indication: MIGRAINE
     Dosage: 1600 MG (PRESCRIBED DOSE: 60 MG), ORAL
     Route: 048

REACTIONS (7)
  - BRADYCARDIA [None]
  - ELECTROCARDIOGRAM QRS COMPLEX PROLONGED [None]
  - ELECTROCARDIOGRAM QT CORRECTED INTERVAL PROLONGED [None]
  - ELECTROCARDIOGRAM T WAVE INVERSION [None]
  - HYPOTENSION [None]
  - INTENTIONAL MISUSE [None]
  - SINUS TACHYCARDIA [None]
